FAERS Safety Report 8278380-9 (Version None)
Quarter: 2012Q2

REPORT INFORMATION
  Report Type: 
  Country: None (occurrence: None)
  Receive Date: 20120412
  Receipt Date: 20110822
  Transmission Date: 20120825
  Serious: No
  Sender: FDA-Public Use
  Company Number: US-ASTRAZENECA-2011SE50959

PATIENT
  Age: 81 Year
  Sex: Female

DRUGS (4)
  1. OMEPRAZOLE [Concomitant]
  2. NEXIUM [Suspect]
     Route: 048
  3. ZANTAC [Concomitant]
  4. PRILOSEC OTC [Suspect]
     Route: 048

REACTIONS (6)
  - DRUG INEFFECTIVE [None]
  - EATING DISORDER [None]
  - PAIN [None]
  - VOMITING [None]
  - ABDOMINAL DISCOMFORT [None]
  - DRUG DOSE OMISSION [None]
